FAERS Safety Report 4530053-1 (Version None)
Quarter: 2004Q4

REPORT INFORMATION
  Report Type: 
  Country: None (occurrence: None)
  Receive Date: 20041215
  Receipt Date: 20041215
  Transmission Date: 20050328
  Serious: Yes (Other)
  Sender: FDA-Public Use
  Company Number: None

PATIENT
  Age: 61 Year
  Sex: Female

DRUGS (1)
  1. GAVISCON [Suspect]
     Indication: DYSPEPSIA

REACTIONS (2)
  - ORAL DISCOMFORT [None]
  - SALIVARY HYPERSECRETION [None]
